FAERS Safety Report 10146477 (Version 2)
Quarter: 2014Q2

REPORT INFORMATION
  Report Type: Spontaneous
  Country: JP (occurrence: JP)
  Receive Date: 20140501
  Receipt Date: 20140515
  Transmission Date: 20141212
  Serious: Yes (Hospitalization)
  Sender: FDA-Public Use
  Company Number: JP-ABBVIE-14P-087-1231039-00

PATIENT
  Age: 64 Year
  Sex: Female

DRUGS (2)
  1. ADALIMUMAB [Suspect]
     Indication: PRODUCT USED FOR UNKNOWN INDICATION
     Dates: start: 2009
  2. MTX [Suspect]
     Indication: RHEUMATOID ARTHRITIS
     Dates: start: 2005

REACTIONS (4)
  - Convulsion [Unknown]
  - Brain mass [Recovering/Resolving]
  - Lymphadenopathy [Unknown]
  - Lymphoproliferative disorder [Unknown]
